FAERS Safety Report 21022009 (Version 2)
Quarter: 2022Q4

REPORT INFORMATION
  Report Type: Spontaneous
  Country: US (occurrence: US)
  Receive Date: 20220629
  Receipt Date: 20221019
  Transmission Date: 20230113
  Serious: Yes (Other)
  Sender: FDA-Public Use
  Company Number: US-BRISTOL-MYERS SQUIBB COMPANY-2022-065811

PATIENT
  Age: 80 Year
  Sex: Male

DRUGS (2)
  1. REVLIMID [Suspect]
     Active Substance: LENALIDOMIDE
     Indication: Follicular lymphoma
     Dosage: QD X 21 DAYS THEN 7 DAYS OFF
     Route: 048
     Dates: start: 20210830
  2. REVLIMID [Suspect]
     Active Substance: LENALIDOMIDE
     Dosage: FREQUENCY :  TAKE 1 CAPSULE BY MOUTH  DAILY FOR 3 WEEKS IN A ROW  AND 1 WEEK OFF FOR 3 WEEKS IN  A R
     Route: 048

REACTIONS (3)
  - Thrombocytopenia [Unknown]
  - White blood cell count decreased [Unknown]
  - Laboratory test abnormal [Unknown]
